FAERS Safety Report 7514719-7 (Version None)
Quarter: 2011Q2

REPORT INFORMATION
  Report Type: 
  Country: None (occurrence: None)
  Receive Date: 20110601
  Receipt Date: 20110513
  Transmission Date: 20111010
  Serious: Yes (Hospitalization, Other)
  Sender: FDA-Public Use
  Company Number: US-BAYER-201021404NA

PATIENT
  Age: 35 Year
  Sex: Female
  Weight: 104.31 kg

DRUGS (9)
  1. SYNTHROID [Concomitant]
     Indication: BLOOD THYROID STIMULATING HORMONE DECREASED
     Dosage: 150 MCG/24HR, UNK
     Dates: start: 19900101
  2. ALBUTEROL SULFATE AUTOHALER [Concomitant]
     Indication: ASTHMA
     Dosage: 2 PUFF(S), PRN
  3. NAPROXEN (ALEVE) [Concomitant]
     Indication: PAIN
     Dosage: UNK
     Dates: start: 20080201
  4. YAZ [Suspect]
     Indication: CONTRACEPTION
     Route: 048
     Dates: start: 20060101, end: 20080301
  5. IBUPROFEN [Concomitant]
     Dosage: UNK
     Dates: start: 20080201
  6. ADVAIR DISKUS 100/50 [Concomitant]
     Indication: ASTHMA
     Dosage: UNK UNK, PRN
  7. BENTYL [Concomitant]
     Dosage: UNK
  8. YAZ [Suspect]
     Indication: PREMENSTRUAL SYNDROME
  9. NEXIUM [Concomitant]
     Dosage: UNK UNK, PRN
     Dates: start: 20080201, end: 20080301

REACTIONS (10)
  - PHLEBITIS SUPERFICIAL [None]
  - ERYTHEMA [None]
  - ANXIETY [None]
  - PNEUMONIA [None]
  - ILEITIS [None]
  - PAIN [None]
  - PULMONARY EMBOLISM [None]
  - OEDEMA PERIPHERAL [None]
  - PAIN IN EXTREMITY [None]
  - ABDOMINAL PAIN [None]
